FAERS Safety Report 9931023 (Version 2)
Quarter: 2014Q1

REPORT INFORMATION
  Report Type: Spontaneous
  Country: US (occurrence: US)
  Receive Date: 20140227
  Receipt Date: 20140227
  Transmission Date: 20141002
  Serious: Yes (Disabling)
  Sender: FDA-Public Use
  Company Number: US-GE HEALTHCARE MEDICAL DIAGNOSTICS-OSCN-PR-0805S-0289

PATIENT
  Age: 71 Year
  Sex: Male

DRUGS (4)
  1. OMNISCAN [Suspect]
     Indication: PANCREATIC MASS
     Route: 042
     Dates: start: 20060502, end: 20060502
  2. OMNISCAN [Suspect]
     Indication: HYPOAESTHESIA
     Route: 042
     Dates: start: 20060515, end: 20060515
  3. OMNISCAN [Suspect]
     Indication: GAIT DISTURBANCE
  4. CLOBETASOL [Concomitant]
     Route: 061

REACTIONS (1)
  - Nephrogenic systemic fibrosis [Not Recovered/Not Resolved]
